FAERS Safety Report 19205786 (Version 1)
Quarter: 2021Q2

REPORT INFORMATION
  Report Type: Spontaneous
  Country: US (occurrence: US)
  Receive Date: 20210503
  Receipt Date: 20210503
  Transmission Date: 20210717
  Serious: No
  Sender: FDA-Public Use
  Company Number: US-FARMAPROD-202103-0306

PATIENT
  Age: 75 Year
  Sex: Female

DRUGS (10)
  1. PROBIOTIC 10B CELL [Concomitant]
  2. MULTIVITAMIN 50 PLUS [Concomitant]
  3. AMLODIPINE BESILATE [Concomitant]
     Active Substance: AMLODIPINE BESYLATE
  4. METFORMIN ER GASTRIC [Concomitant]
     Dosage: EXTENDED RELEASE GASTRIC
  5. CREON [Concomitant]
     Active Substance: PANCRELIPASE AMYLASE\PANCRELIPASE LIPASE\PANCRELIPASE PROTEASE
     Dosage: 12.000?38.000?60 DELAYED RELEASE CAPSULE
  6. LISINOPRIL. [Concomitant]
     Active Substance: LISINOPRIL
  7. OXERVATE [Suspect]
     Active Substance: CENEGERMIN-BKBJ
     Indication: NEUROTROPHIC KERATOPATHY
     Route: 047
     Dates: start: 20210225
  8. REFRESH CLASSIC [Concomitant]
     Active Substance: POLYVINYL ALCOHOL\POVIDONE
  9. ESTROBLEND [Concomitant]
     Active Substance: DIETARY SUPPLEMENT
     Dosage: 500?20?40
  10. CITRACAL/D MAXIMUM [Concomitant]

REACTIONS (2)
  - Eye swelling [Unknown]
  - Eye pain [Unknown]

NARRATIVE: CASE EVENT DATE: 20210227
